FAERS Safety Report 4306974-1 (Version None)
Quarter: 2004Q1

REPORT INFORMATION
  Report Type: 
  Country: None (occurrence: None)
  Receive Date: 20040225
  Receipt Date: 20040209
  Transmission Date: 20041129
  Serious: Yes (Hospitalization)
  Sender: FDA-Public Use
  Company Number: US067336

PATIENT
  Age: 63 Year
  Sex: Female
  Weight: 57 kg

DRUGS (8)
  1. ENBREL [Suspect]
     Indication: RHEUMATOID ARTHRITIS
     Dosage: 25 MG, 2 IN 1 WEEKS, SC
     Route: 058
     Dates: start: 20030706, end: 20030820
  2. ATORVASTATIN CALCIUM [Concomitant]
  3. DIABETIC MEDICATION NOS [Concomitant]
  4. LORAZEPAM [Concomitant]
  5. AMLODIPINE [Concomitant]
  6. METHYLPREDNISOLONE [Concomitant]
  7. PRAZEPAM [Concomitant]
  8. SODIUM PICOSULFATE [Concomitant]

REACTIONS (10)
  - AGITATION [None]
  - ALCOHOL USE [None]
  - BLOOD KETONE BODY PRESENT [None]
  - BLOOD SODIUM DECREASED [None]
  - CONFUSIONAL STATE [None]
  - GLYCOSURIA [None]
  - HYPERTENSION [None]
  - PROTEINURIA [None]
  - PYREXIA [None]
  - SOMNOLENCE [None]
